FAERS Safety Report 7313848-0 (Version None)
Quarter: 2011Q1

REPORT INFORMATION
  Report Type: 
  Country: None (occurrence: None)
  Receive Date: 20110215
  Receipt Date: 20110202
  Transmission Date: 20110831
  Serious: Yes (Disabling)
  Sender: FDA-Public Use
  Company Number: 20110097

PATIENT
  Age: 48 Year
  Sex: Female

DRUGS (1)
  1. DEXAMETHASONE SODIUM PHOSPHATE INJECTION, USP (4930-25) 4 MG/ML [Suspect]
     Indication: PAIN IN EXTREMITY
     Dosage: 4 MG/ML ONCE INJECTION NOS
     Dates: start: 20100914, end: 20100914

REACTIONS (3)
  - INFECTION [None]
  - INJECTION SITE ULCER [None]
  - PAIN [None]
